FAERS Safety Report 10207121 (Version 2)
Quarter: 2014Q2

REPORT INFORMATION
  Report Type: Report from Study
  Country: FR (occurrence: FR)
  Receive Date: 20140530
  Receipt Date: 20140626
  Transmission Date: 20141212
  Serious: Yes (Death)
  Sender: FDA-Public Use
  Company Number: FR-SA-2014SA067735

PATIENT
  Age: 65 Year
  Sex: Male

DRUGS (1)
  1. ALEMTUZUMAB [Suspect]
     Indication: LEUKAEMIA
     Route: 065
     Dates: start: 20131224, end: 20131225

REACTIONS (3)
  - Multi-organ failure [Fatal]
  - Disease progression [Fatal]
  - Drug ineffective [Fatal]
